FAERS Safety Report 4788419-0 (Version None)
Quarter: 2005Q3

REPORT INFORMATION
  Report Type: 
  Country: None (occurrence: None)
  Receive Date: 20050921
  Receipt Date: 20040727
  Transmission Date: 20060218
  Serious: Yes (Hospitalization)
  Sender: FDA-Public Use
  Company Number: 2004051533

PATIENT
  Age: 48 Year
  Sex: Female

DRUGS (3)
  1. PHENYTOIN SODIUM [Suspect]
     Indication: CONVULSION
     Dosage: 360 MG ORAL
     Route: 048
     Dates: start: 20040205, end: 20040323
  2. PHENYTOIN SODIUM [Suspect]
     Indication: CONVULSION
     Dosage: 360 MG ORAL
     Route: 048
     Dates: start: 20040321, end: 20040323
  3. PERINDOPRIL (PERINDOPRIL) [Suspect]
     Indication: ESSENTIAL HYPERTENSION
     Dosage: 2 MG

REACTIONS (4)
  - DRUG HYPERSENSITIVITY [None]
  - HEPATIC FUNCTION ABNORMAL [None]
  - PYREXIA [None]
  - RASH [None]
